FAERS Safety Report 14547531 (Version 1)
Quarter: 2018Q1

REPORT INFORMATION
  Report Type: Spontaneous
  Country: US (occurrence: US)
  Receive Date: 20180219
  Receipt Date: 20180219
  Transmission Date: 20180509
  Serious: No
  Sender: FDA-Public Use
  Company Number: US-BAYER-2018-028474

PATIENT
  Age: 64 Year
  Sex: Female
  Weight: 62 kg

DRUGS (3)
  1. ADVIL [Concomitant]
     Active Substance: IBUPROFEN
  2. WITCH HAZEL. [Concomitant]
     Active Substance: WITCH HAZEL
     Dosage: UNK
  3. MIRALAX [Suspect]
     Active Substance: POLYETHYLENE GLYCOL 3350
     Indication: ENEMA ADMINISTRATION
     Dosage: 2 DF, ;2 CAPFULS DAILY FOR A WEEK
     Route: 048
     Dates: start: 20180209

REACTIONS (4)
  - Off label use [Unknown]
  - Product use issue [Unknown]
  - Circumstance or information capable of leading to medication error [Unknown]
  - Product use in unapproved indication [Unknown]

NARRATIVE: CASE EVENT DATE: 20180209
